FAERS Safety Report 8421061-9 (Version None)
Quarter: 2012Q2

REPORT INFORMATION
  Report Type: 
  Country: None (occurrence: None)
  Receive Date: 20120608
  Receipt Date: 20120602
  Transmission Date: 20120825
  Serious: Yes (Other)
  Sender: FDA-Public Use
  Company Number: BR-US-EMD SERONO, INC.-7133661

PATIENT
  Sex: Female

DRUGS (10)
  1. CITONEURIM (CITONEURIN) [Concomitant]
     Indication: PRODUCT USED FOR UNKNOWN INDICATION
  2. SINVASTATINE (SIMVASTATIN) [Concomitant]
  3. IBUPROFEN [Concomitant]
     Indication: PRODUCT USED FOR UNKNOWN INDICATION
  4. AMPLICTIL [Concomitant]
     Indication: STRESS
  5. REBIF [Suspect]
     Indication: RELAPSING-REMITTING MULTIPLE SCLEROSIS
     Dates: start: 20060807, end: 20120504
  6. REBIF [Suspect]
     Dates: start: 20120504
  7. FLUOXETINE [Concomitant]
     Indication: PRODUCT USED FOR UNKNOWN INDICATION
  8. SINVASTATINE (SIMVASTATIN) [Concomitant]
     Indication: PRODUCT USED FOR UNKNOWN INDICATION
  9. SYMBICORT/ ALENIA [Concomitant]
     Indication: ASTHMA
  10. ADDERA D3 (COLECALCIFEROL) [Concomitant]
     Indication: PRODUCT USED FOR UNKNOWN INDICATION

REACTIONS (7)
  - BLOOD PRESSURE INCREASED [None]
  - GINGIVAL ABSCESS [None]
  - ANXIETY [None]
  - BRUXISM [None]
  - NERVOUSNESS [None]
  - APNOEA [None]
  - MYALGIA [None]
